FAERS Safety Report 6239748-5 (Version None)
Quarter: 2009Q2

REPORT INFORMATION
  Report Type: 
  Country: None (occurrence: None)
  Receive Date: 20090619
  Receipt Date: 20090608
  Transmission Date: 20091009
  Serious: Yes (Hospitalization)
  Sender: FDA-Public Use
  Company Number: ADR3802009

PATIENT
  Age: 69 Year
  Sex: Female

DRUGS (5)
  1. RAMIPRIL [Suspect]
     Indication: HYPERTENSION
     Dosage: 5 MG, ORAL
     Route: 048
  2. BELOC ZOK [Concomitant]
  3. ACETYLSALICYCLIC ACID (100 MG) [Concomitant]
  4. AMLODIPINE W/VALSARTAN (1 DF) [Concomitant]
  5. DOXAZOSIN MESYLATE [Concomitant]

REACTIONS (3)
  - DRUG INTERACTION [None]
  - SINUS BRADYCARDIA [None]
  - SYNCOPE [None]
